FAERS Safety Report 21266168 (Version 2)
Quarter: 2022Q3

REPORT INFORMATION
  Report Type: Spontaneous
  Country: US (occurrence: US)
  Receive Date: 20220829
  Receipt Date: 20220907
  Transmission Date: 20221027
  Serious: Yes (Other)
  Sender: FDA-Public Use
  Company Number: US-PFIZER INC-202201094033

PATIENT
  Age: 70 Year
  Sex: Female
  Weight: 99.773 kg

DRUGS (11)
  1. GABAPENTIN [Suspect]
     Active Substance: GABAPENTIN
     Indication: Neuralgia
     Dosage: UNK
     Dates: start: 2007
  2. GABAPENTIN [Suspect]
     Active Substance: GABAPENTIN
     Dosage: 700 MG, 4X/DAY
  3. GABAPENTIN [Suspect]
     Active Substance: GABAPENTIN
     Dosage: 400 MG, 4X/DAY
  4. GABAPENTIN [Suspect]
     Active Substance: GABAPENTIN
     Dosage: 200 MG, 2X/DAY
  5. GABAPENTIN [Suspect]
     Active Substance: GABAPENTIN
     Dosage: 100 MG, 4X/DAY
  6. GABAPENTIN [Suspect]
     Active Substance: GABAPENTIN
     Dosage: 100 MG, 2X/DAY
  7. ATENOLOL [Concomitant]
     Active Substance: ATENOLOL
     Dosage: 25 MG
  8. DIOVAN [Concomitant]
     Active Substance: VALSARTAN
     Dosage: 80 MG
  9. SYNTHROID [Concomitant]
     Active Substance: LEVOTHYROXINE SODIUM
     Dosage: 137 MG
  10. CROMOLYN SODIUM [Concomitant]
     Active Substance: CROMOLYN SODIUM
     Dosage: UNK
  11. CARAFATE [Concomitant]
     Active Substance: SUCRALFATE
     Dosage: UNK

REACTIONS (16)
  - Drug withdrawal convulsions [Unknown]
  - Weight increased [Unknown]
  - Vision blurred [Unknown]
  - Rotator cuff syndrome [Unknown]
  - Dizziness [Unknown]
  - Joint injury [Unknown]
  - Feeling abnormal [Unknown]
  - Serotonin deficiency [Unknown]
  - Tooth loss [Unknown]
  - Illness [Unknown]
  - Headache [Unknown]
  - Balance disorder [Unknown]
  - Polyneuropathy chronic [Unknown]
  - Psychotic behaviour [Unknown]
  - Incontinence [Unknown]
  - Off label use [Unknown]
